FAERS Safety Report 5684603-2 (Version None)
Quarter: 2008Q1

REPORT INFORMATION
  Report Type: 
  Country: None (occurrence: None)
  Receive Date: 20080328
  Receipt Date: 20070509
  Transmission Date: 20080703
  Serious: Yes (Death, Hospitalization, Other)
  Sender: FDA-Public Use
  Company Number: US-BRISTOL-MYERS SQUIBB COMPANY-13737499

PATIENT
  Age: 73 Year
  Sex: Female
  Weight: 68 kg

DRUGS (6)
  1. ERBITUX [Suspect]
     Indication: COLON CANCER
     Route: 042
     Dates: start: 20061102
  2. BENADRYL [Concomitant]
     Indication: PREMEDICATION
     Route: 042
  3. SODIUM BICARBONATE [Concomitant]
  4. TYLENOL (CAPLET) [Concomitant]
  5. DARVOCET [Concomitant]
  6. ARANESP [Concomitant]
     Indication: ANAEMIA

REACTIONS (10)
  - CARDIO-RESPIRATORY ARREST [None]
  - FALL [None]
  - FATIGUE [None]
  - FEELING ABNORMAL [None]
  - HAEMATOCRIT DECREASED [None]
  - HAEMOGLOBIN DECREASED [None]
  - INFUSION RELATED REACTION [None]
  - LOSS OF CONSCIOUSNESS [None]
  - RECTAL CANCER METASTATIC [None]
  - VENTRICULAR TACHYCARDIA [None]
